FAERS Safety Report 5382107-8 (Version None)
Quarter: 2007Q3

REPORT INFORMATION
  Report Type: 
  Country: None (occurrence: None)
  Receive Date: 20070709
  Receipt Date: 20070702
  Transmission Date: 20080115
  Serious: No
  Sender: FDA-Public Use
  Company Number: US-BAXTER-2007BH005988

PATIENT
  Age: 41 Year
  Sex: Female
  Weight: 99 kg

DRUGS (3)
  1. PROMETHAZINE [Suspect]
     Indication: NAUSEA
     Dosage: DOSE UNIT:UNKNOWN
     Route: 042
     Dates: start: 20070628, end: 20070628
  2. VICODIN [Concomitant]
     Indication: PAIN
     Dosage: DOSE UNIT:UNKNOWN
     Route: 048
     Dates: start: 20070621
  3. MORPHINE [Concomitant]
     Indication: PAIN
     Dosage: DOSE UNIT:UNKNOWN
     Route: 042
     Dates: start: 20070628

REACTIONS (5)
  - BURNING SENSATION [None]
  - CELLULITIS [None]
  - ERYTHEMA [None]
  - PAIN [None]
  - SWELLING [None]
